FAERS Safety Report 12298941 (Version 1)
Quarter: 2016Q2

REPORT INFORMATION
  Report Type: Spontaneous
  Country: US (occurrence: None)
  Receive Date: 20160422
  Receipt Date: 20160422
  Transmission Date: 20160815
  Serious: Yes (Other)
  Sender: FDA-Public Use
  Company Number: None

PATIENT
  Age: 38 Year
  Sex: Female

DRUGS (1)
  1. CLOZAPINE, 600 MG [Suspect]
     Active Substance: CLOZAPINE
     Dosage: SOME PILLS
     Route: 048
     Dates: start: 201402, end: 20141021

REACTIONS (2)
  - Exposure during pregnancy [None]
  - Incorrect dose administered [None]

NARRATIVE: CASE EVENT DATE: 201603
